FAERS Safety Report 21059243 (Version 1)
Quarter: 2022Q3

REPORT INFORMATION
  Report Type: Spontaneous
  Country: US (occurrence: None)
  Receive Date: 20220708
  Receipt Date: 20220708
  Transmission Date: 20221027
  Serious: Yes (Other)
  Sender: FDA-Public Use
  Company Number: 2022A240506

PATIENT
  Age: 50 Year
  Sex: Male

DRUGS (3)
  1. OSIMERTINIB [Suspect]
     Active Substance: OSIMERTINIB
     Indication: Non-small cell lung cancer stage IV
     Route: 048
     Dates: start: 201905, end: 2020
  2. PEMETREXED [Concomitant]
     Active Substance: PEMETREXED
     Indication: Chemotherapy
  3. CARBOPLATIN [Concomitant]
     Active Substance: CARBOPLATIN
     Indication: Chemotherapy

REACTIONS (5)
  - Metastases to liver [Not Recovered/Not Resolved]
  - Acquired gene mutation [Unknown]
  - Drug resistance [Unknown]
  - Malignant neoplasm progression [Not Recovered/Not Resolved]
  - Off label use [Unknown]

NARRATIVE: CASE EVENT DATE: 20190701
